FAERS Safety Report 9200913 (Version 5)
Quarter: 2014Q1

REPORT INFORMATION
  Report Type: Spontaneous
  Country: US (occurrence: US)
  Receive Date: 20130401
  Receipt Date: 20140224
  Transmission Date: 20141002
  Serious: Yes (Hospitalization)
  Sender: FDA-Public Use
  Company Number: US-BAYER-2013-039170

PATIENT
  Age: 33 Year
  Sex: Female
  Weight: 77 kg

DRUGS (13)
  1. MIRENA [Suspect]
     Dosage: 20 MCG/24HR, CONT
     Route: 015
     Dates: start: 20090225, end: 20110317
  2. SINGULAIR [Concomitant]
     Indication: ASTHMA
     Dosage: UNK
     Dates: start: 1993
  3. SINGULAIR [Concomitant]
     Indication: MULTIPLE ALLERGIES
  4. ADVAIR [Concomitant]
     Indication: ASTHMA
     Dosage: UNK
     Dates: start: 1993
  5. ADVAIR [Concomitant]
     Indication: MULTIPLE ALLERGIES
  6. ALBUTEROL [Concomitant]
     Indication: ASTHMA
     Dosage: UNK
     Dates: start: 1993
  7. ALBUTEROL [Concomitant]
     Indication: MULTIPLE ALLERGIES
  8. NAPROXEN [Concomitant]
     Dosage: 500 MG, BID
  9. HYDROCODONE W/ACETAMINOPHEN [Concomitant]
     Indication: PAIN
     Dosage: 5/325 MG, 1-2 EVERY 4-6 HOURS P.R.N. (INTERPRETED AS AS NEEDED)
  10. PROAIR HFA [Concomitant]
     Indication: DYSPNOEA
     Dosage: 90 MCG/24HR,1-2 PUFFS P.R.N.
     Route: 045
  11. PROAIR HFA [Concomitant]
     Indication: WHEEZING
  12. IBUPROFEN [Concomitant]
     Dosage: 800 MG, TID
  13. PRENATAL VITAMINS [Concomitant]

REACTIONS (5)
  - Uterine perforation [None]
  - Emotional distress [None]
  - Injury [None]
  - Pain [None]
  - Menorrhagia [None]
